FAERS Safety Report 10094187 (Version 1)
Quarter: 2014Q2

REPORT INFORMATION
  Report Type: Spontaneous
  Country: US (occurrence: None)
  Receive Date: 20140418
  Receipt Date: 20140418
  Transmission Date: 20141212
  Serious: Yes (Other)
  Sender: FDA-Public Use
  Company Number: 001711679A

PATIENT
  Age: 29 Year
  Sex: Male

DRUGS (5)
  1. PROACTIV + SKIN SMOOTHING EXFOLIATOR [Suspect]
     Indication: ACNE
     Dosage: TWICE DAILY DERMAL
     Dates: start: 20140320, end: 20140331
  2. PROACTIV + PORE TARGETING TREATMENT [Suspect]
     Indication: ACNE
     Dosage: TWICE DAILY DERMAL
     Dates: start: 20140320, end: 20140331
  3. PROACTIV + COMPLEXION PERFECTING HYDRATOR [Suspect]
     Indication: ACNE
     Dosage: TWICE DAILY DERMAL
  4. PROACTIV + SMOOTHING SHAVE GEL [Suspect]
     Indication: ACNE
     Dosage: TWICE DAILY DERMAL
  5. PROACTIV + SKIN PURIFYING MASK [Suspect]
     Indication: ACNE
     Dosage: TWICE DAILY DERMAL
     Dates: start: 20140320, end: 20140323

REACTIONS (7)
  - Burning sensation [None]
  - Acne [None]
  - Rash erythematous [None]
  - Eye swelling [None]
  - Dyspnoea [None]
  - Swelling face [None]
  - Local swelling [None]
